FAERS Safety Report 7498946-3 (Version None)
Quarter: 2011Q2

REPORT INFORMATION
  Report Type: 
  Country: None (occurrence: None)
  Receive Date: 20110516
  Receipt Date: 20110504
  Transmission Date: 20111010
  Serious: Yes (Other)
  Sender: FDA-Public Use
  Company Number: 909001

PATIENT

DRUGS (1)
  1. MORPHINE SULFATE [Suspect]
     Indication: PAIN
     Dosage: 4 MG, ONCE, INTRAVENOUS
     Route: 042
     Dates: start: 20110504, end: 20110504

REACTIONS (1)
  - INFUSION SITE URTICARIA [None]
